FAERS Safety Report 16977822 (Version 3)
Quarter: 2020Q1

REPORT INFORMATION
  Report Type: Spontaneous
  Country: FR (occurrence: FR)
  Receive Date: 20191031
  Receipt Date: 20200109
  Transmission Date: 20200409
  Serious: Yes (Other)
  Sender: FDA-Public Use
  Company Number: FR-TEVA-2019-FR-1129725

PATIENT
  Age: 57 Year
  Sex: Female

DRUGS (5)
  1. BETADINE DERMIQUE 10 POUR CENT, SOLUTION POUR APPLICATION LOCALE [Suspect]
     Active Substance: POVIDONE-IODINE
     Indication: INFECTION PROPHYLAXIS
     Dosage: SOLUTION FOR LOCAL APPLICATION, 1 DOSAGE FORMS, TOTAL
     Route: 003
     Dates: start: 20190803, end: 20190803
  2. CHLORHYDRATE DE TRAMADOL [Suspect]
     Active Substance: TRAMADOL HYDROCHLORIDE
     Indication: ANALGESIC INTERVENTION SUPPORTIVE THERAPY
     Dosage: 50 MILLIGRAM PER DAY
     Route: 048
     Dates: start: 20190803, end: 20190804
  3. PROFENID [Suspect]
     Active Substance: KETOPROFEN
     Indication: ANTIINFLAMMATORY THERAPY
     Dosage: 50 MILLIGRAM PER DAY
     Route: 048
     Dates: start: 20190803, end: 20190804
  4. PARACETAMOL ZENTIVA [Suspect]
     Active Substance: ACETAMINOPHEN
     Indication: ANALGESIC INTERVENTION SUPPORTIVE THERAPY
     Dosage: 1 GRAM PER DAY
     Route: 048
     Dates: start: 20190803, end: 20190805
  5. BETADINE DERMIQUE 10 POUR CENT, SOLUTION POUR APPLICATION LOCALE [Suspect]
     Active Substance: POVIDONE-IODINE
     Dosage: 1 DOSAGE FORMS, TOTAL
     Route: 003
     Dates: start: 20190803, end: 20190803

REACTIONS (4)
  - Rash pruritic [Recovered/Resolved]
  - Oedema peripheral [Recovered/Resolved]
  - Dermatitis bullous [Recovered/Resolved]
  - Eyelid oedema [Recovered/Resolved]

NARRATIVE: CASE EVENT DATE: 20190803
